FAERS Safety Report 22315333 (Version 1)
Quarter: 2023Q2

REPORT INFORMATION
  Report Type: Spontaneous
  Country: US (occurrence: None)
  Receive Date: 20230511
  Receipt Date: 20230511
  Transmission Date: 20230721
  Serious: Yes (Hospitalization)
  Sender: FDA-Public Use
  Company Number: None

PATIENT
  Sex: Male

DRUGS (1)
  1. OCTREOTIDE [Suspect]
     Active Substance: OCTREOTIDE
     Indication: Blood loss anaemia
     Dosage: 0.5ML 3 TIMES DAILY UNDER THE SKIN
     Route: 058
     Dates: start: 202110

REACTIONS (1)
  - Vascular device infection [None]
